FAERS Safety Report 21713195 (Version 1)
Quarter: 2022Q4

REPORT INFORMATION
  Report Type: Report from Study
  Country: US (occurrence: US)
  Receive Date: 20221212
  Receipt Date: 20221212
  Transmission Date: 20230113
  Serious: Yes (Death, Other)
  Sender: FDA-Public Use
  Company Number: US-SA-2022SA498192

PATIENT
  Age: 5 Year
  Sex: Male

DRUGS (4)
  1. ALEMTUZUMAB [Suspect]
     Active Substance: ALEMTUZUMAB
     Indication: Immunosuppression
     Dosage: 0.35 MG/KG MAXIMUM OF 20 MG
  2. TACROLIMUS [Suspect]
     Active Substance: TACROLIMUS
     Indication: Immunosuppression
     Dosage: 8 TO 10 NG/ML FOR THE FIRST 12 MONTHS, BID
     Route: 048
  3. MYCOPHENOLATE MOFETIL [Suspect]
     Active Substance: MYCOPHENOLATE MOFETIL
     Indication: Immunosuppression
     Dosage: 300 MG/M2, BID MAXIMUM OF 1000 MG
  4. VALGANCICLOVIR [Concomitant]
     Active Substance: VALGANCICLOVIR
     Indication: Antiviral prophylaxis

REACTIONS (7)
  - Pneumocystis jirovecii pneumonia [Fatal]
  - Parainfluenzae virus infection [Fatal]
  - Clostridium difficile infection [Fatal]
  - Colitis ischaemic [Fatal]
  - Post transplant lymphoproliferative disorder [Unknown]
  - Rectal haemorrhage [Unknown]
  - Diffuse large B-cell lymphoma [Unknown]
